FAERS Safety Report 18245686 (Version 2)
Quarter: 2020Q4

REPORT INFORMATION
  Report Type: Report from Study
  Country: IT (occurrence: IT)
  Receive Date: 20200909
  Receipt Date: 20201109
  Transmission Date: 20210113
  Serious: Yes (Hospitalization)
  Sender: FDA-Public Use
  Company Number: IT-TEVA-2020-IT-1823689

PATIENT
  Age: 89 Year
  Sex: Female

DRUGS (6)
  1. BISOPROLOL FUMARATE. [Suspect]
     Active Substance: BISOPROLOL FUMARATE
     Indication: ARRHYTHMIA
     Dosage: 1.25 MG
     Route: 048
     Dates: start: 20190110
  2. DULOXETINE HYDROCHLORIDE. [Concomitant]
     Active Substance: DULOXETINE HYDROCHLORIDE
  3. RAMIPRIL. [Concomitant]
     Active Substance: RAMIPRIL
  4. AMLODIPINE [Concomitant]
     Active Substance: AMLODIPINE BESYLATE
  5. AMIODARONE [Suspect]
     Active Substance: AMIODARONE
     Indication: TACHYCARDIA
     Dosage: 1.25 MG
     Route: 048
     Dates: start: 20190110
  6. XARELTO [Suspect]
     Active Substance: RIVAROXABAN
     Indication: ATRIAL FIBRILLATION
     Dosage: 15 MG
     Route: 048
     Dates: start: 20190110

REACTIONS (3)
  - Tachycardia [Recovering/Resolving]
  - Arrhythmia [Recovering/Resolving]
  - Drug ineffective [Recovering/Resolving]

NARRATIVE: CASE EVENT DATE: 20200719
